FAERS Safety Report 5841511-1 (Version None)
Quarter: 2008Q3

REPORT INFORMATION
  Report Type: 
  Country: None (occurrence: None)
  Receive Date: 20080812
  Receipt Date: 20080807
  Transmission Date: 20090109
  Serious: Yes (Other)
  Sender: FDA-Public Use
  Company Number: GB-TEVA-166591ISR

PATIENT
  Age: 41 Year
  Sex: Female

DRUGS (2)
  1. TRIMETHOPRIM [Suspect]
     Route: 048
     Dates: start: 20071121, end: 20071201
  2. DESOGESTREL [Suspect]
     Route: 048
     Dates: start: 20070910

REACTIONS (3)
  - ABORTION SPONTANEOUS [None]
  - AMENORRHOEA [None]
  - PREGNANCY ON ORAL CONTRACEPTIVE [None]
